FAERS Safety Report 9928403 (Version 3)
Quarter: 2014Q2

REPORT INFORMATION
  Report Type: Spontaneous
  Country: US (occurrence: US)
  Receive Date: 20140227
  Receipt Date: 20140409
  Transmission Date: 20141212
  Serious: No
  Sender: FDA-Public Use
  Company Number: US-PFIZER INC-2014051578

PATIENT
  Sex: Female

DRUGS (2)
  1. PREMARIN [Suspect]
     Dosage: 0.05 MG, 1X/DAY
     Route: 067
     Dates: start: 201402
  2. PREMARIN [Suspect]
     Dosage: 0.05 MG, 2X/WEEK
     Route: 067

REACTIONS (4)
  - Pelvic pain [Unknown]
  - Product quality issue [Unknown]
  - Application site pain [Unknown]
  - Application site irritation [Unknown]
